FAERS Safety Report 10200492 (Version 3)
Quarter: 2014Q2

REPORT INFORMATION
  Report Type: Report from Study
  Country: CA (occurrence: CA)
  Receive Date: 20140528
  Receipt Date: 20140623
  Transmission Date: 20141212
  Serious: Yes (Hospitalization)
  Sender: FDA-Public Use
  Company Number: CA-ROCHE-1375833

PATIENT
  Age: 74 Year
  Sex: Male

DRUGS (10)
  1. RITUXAN [Suspect]
     Indication: RHEUMATOID ARTHRITIS
     Dosage: LAST DOSE TAKEN ON 02/APR/2013
     Route: 042
     Dates: start: 20130325
  2. TECTA [Suspect]
     Indication: PRODUCT USED FOR UNKNOWN INDICATION
     Route: 065
  3. DIPHENHYDRAMINE HCL [Concomitant]
     Indication: PREMEDICATION
     Route: 048
     Dates: start: 20130325
  4. METHYLPREDNISOLONE [Concomitant]
     Indication: PREMEDICATION
     Route: 042
     Dates: start: 20130325
  5. ACETAMINOPHEN [Concomitant]
     Indication: PREMEDICATION
     Route: 048
     Dates: start: 20130325
  6. PREDNISONE [Concomitant]
  7. INSULIN [Concomitant]
  8. GABAPENTIN [Concomitant]
  9. SYMBICORT [Concomitant]
  10. CRESTOR [Concomitant]

REACTIONS (7)
  - Arthralgia [Not Recovered/Not Resolved]
  - Pain in extremity [Not Recovered/Not Resolved]
  - Insomnia [Unknown]
  - Nasopharyngitis [Not Recovered/Not Resolved]
  - Hypotension [Unknown]
  - Heart rate decreased [Unknown]
  - White blood cell count increased [Unknown]
